FAERS Safety Report 4593892-7 (Version None)
Quarter: 2005Q1

REPORT INFORMATION
  Report Type: 
  Country: None (occurrence: None)
  Receive Date: 20050301
  Receipt Date: 20041014
  Transmission Date: 20050727
  Serious: Yes (Disabling, Other)
  Sender: FDA-Public Use
  Company Number: US-MERCK-0410USA02228

PATIENT
  Age: 59 Year
  Sex: Female
  Weight: 55 kg

DRUGS (13)
  1. FOSAMAX [Suspect]
     Indication: OSTEOPOROSIS
     Route: 048
     Dates: start: 19960101, end: 20040101
  2. PREMARIN [Concomitant]
     Route: 048
  3. PROMETRIUM [Concomitant]
     Route: 048
  4. TRAZODONE HYDROCHLORIDE [Concomitant]
     Route: 048
  5. ENBREL [Suspect]
     Route: 058
     Dates: end: 20040808
  6. [THERAPY UNSPECIFIED] [Concomitant]
     Indication: KERATOCONJUNCTIVITIS SICCA
     Route: 065
  7. VITAMINS (UNSPECIFIED) [Concomitant]
     Route: 065
  8. CALCIUM (UNSPECIFIED) [Concomitant]
     Route: 065
  9. VITAMIN D (UNSPECIFIED) [Concomitant]
     Route: 065
  10. FOLIC ACID [Concomitant]
     Route: 065
  11. METHOTREXATE [Suspect]
     Route: 065
  12. PREDNISONE [Suspect]
     Route: 065
  13. ANSAID [Concomitant]
     Route: 065

REACTIONS (4)
  - APHTHOUS STOMATITIS [None]
  - ASEPTIC NECROSIS BONE [None]
  - HERPES ZOSTER [None]
  - MOUTH ULCERATION [None]
